FAERS Safety Report 7433947-2 (Version None)
Quarter: 2011Q2

REPORT INFORMATION
  Report Type: 
  Country: None (occurrence: None)
  Receive Date: 20110425
  Receipt Date: 20110412
  Transmission Date: 20111010
  Serious: Yes (Hospitalization, Other)
  Sender: FDA-Public Use
  Company Number: US-JNJFOC-20110405877

PATIENT
  Sex: Female
  Weight: 63.5 kg

DRUGS (11)
  1. UNSPECIFIED FENTANYL MATRIX PATCH [Suspect]
     Indication: ARTHRALGIA
  2. FIORICET [Concomitant]
     Indication: MIGRAINE
     Dosage: AS NEEDED
     Route: 048
  3. DURAGESIC-100 [Suspect]
     Route: 062
  4. WELLBUTRIN [Concomitant]
     Indication: DEPRESSION
     Route: 048
  5. DOXYCYCLINE [Concomitant]
     Indication: EYE DISORDER
     Route: 048
  6. DURAGESIC-100 [Suspect]
     Indication: ARTHRALGIA
     Route: 062
  7. DEPAKOTE ER [Concomitant]
     Indication: BRUXISM
     Route: 048
  8. DURAGESIC-100 [Suspect]
     Indication: MIGRAINE
     Route: 062
  9. UNSPECIFIED FENTANYL MATRIX PATCH [Suspect]
     Indication: MIGRAINE
  10. FLONASE [Concomitant]
     Indication: NASAL CONGESTION
     Route: 045
  11. DEPAKOTE ER [Concomitant]
     Indication: PAIN
     Route: 048

REACTIONS (10)
  - FALL [None]
  - ARTHROPATHY [None]
  - CONTUSION [None]
  - ARTHRALGIA [None]
  - PAIN [None]
  - OSTEONECROSIS [None]
  - JOINT DISLOCATION [None]
  - DEPRESSION [None]
  - INSOMNIA [None]
  - APPLICATION SITE RASH [None]
